FAERS Safety Report 20636617 (Version 1)
Quarter: 2022Q1

REPORT INFORMATION
  Report Type: Spontaneous
  Country: GB (occurrence: GB)
  Receive Date: 20220325
  Receipt Date: 20220325
  Transmission Date: 20220423
  Serious: Yes (Other)
  Sender: FDA-Public Use
  Company Number: GB-GLAXOSMITHKLINE-GB2021GSK064082

PATIENT
  Age: 23 Month
  Sex: Male

DRUGS (6)
  1. ZANAMIVIR [Suspect]
     Active Substance: ZANAMIVIR
     Indication: Influenza
     Dosage: UNK
  2. ZANAMIVIR [Suspect]
     Active Substance: ZANAMIVIR
     Dosage: UNK
  3. OSELTAMIVIR [Suspect]
     Active Substance: OSELTAMIVIR
     Indication: Influenza
     Dosage: UNK
  4. NITAZOXANIDE [Suspect]
     Active Substance: NITAZOXANIDE
     Indication: Influenza
     Dosage: UNK
  5. FAVIPIRAVIR [Concomitant]
     Active Substance: FAVIPIRAVIR
     Indication: Influenza
     Dosage: 60 MG/KG, 1D
  6. FAVIPIRAVIR [Concomitant]
     Active Substance: FAVIPIRAVIR
     Dosage: 23 MG/KG, 1D

REACTIONS (3)
  - Pathogen resistance [Unknown]
  - Drug resistance [Unknown]
  - Drug ineffective [Unknown]
